FAERS Safety Report 4506871-2 (Version None)
Quarter: 2004Q4

REPORT INFORMATION
  Report Type: 
  Country: None (occurrence: None)
  Receive Date: 20041117
  Receipt Date: 20041101
  Transmission Date: 20050328
  Serious: Yes (Hospitalization, Other)
  Sender: FDA-Public Use
  Company Number: 15075

PATIENT
  Age: 6 Year
  Sex: Male

DRUGS (9)
  1. THIOTEPA [Suspect]
     Indication: PRIMITIVE NEUROECTODERMAL TUMOUR
     Dosage: 300 MG/M2 IV
     Route: 042
     Dates: start: 20041020, end: 20041023
  2. ONDANSETRON [Concomitant]
  3. METOCLOPRAMIDE [Concomitant]
  4. BENADRYL [Concomitant]
  5. PHENOBARBITAL TAB [Concomitant]
  6. ACTIVAN [Concomitant]
  7. MORPHINE [Concomitant]
  8. CARBOPLATIN [Concomitant]
  9. TEMODAR [Concomitant]

REACTIONS (4)
  - CONVULSION [None]
  - DEPRESSED LEVEL OF CONSCIOUSNESS [None]
  - MENTAL STATUS CHANGES [None]
  - MIOSIS [None]
